FAERS Safety Report 9457263 (Version 1)
Quarter: 2013Q3

REPORT INFORMATION
  Report Type: Spontaneous
  Country: JP (occurrence: JP)
  Receive Date: 20130814
  Receipt Date: 20130814
  Transmission Date: 20140515
  Serious: Yes (Other)
  Sender: FDA-Public Use
  Company Number: PHHY2013JP086841

PATIENT
  Sex: Male

DRUGS (7)
  1. STARSIS [Suspect]
     Indication: DIABETES MELLITUS
     Dosage: UNK UKN, UNK
     Route: 048
  2. CELECOX [Concomitant]
     Dosage: UNK UKN, UNK
  3. METGLUCO [Concomitant]
     Dosage: UNK UKN, UNK
  4. JANUVIA [Concomitant]
     Dosage: UNK UKN, UNK
  5. GASMOTIN [Concomitant]
     Dosage: UNK UKN, UNK
  6. ALOSENN [Concomitant]
     Dosage: UNK UKN, UNK
  7. MINOMYCIN [Concomitant]
     Dosage: UNK UKN, UNK

REACTIONS (2)
  - Tuberculosis [Unknown]
  - Hypoaesthesia [Unknown]
